FAERS Safety Report 6082744-1 (Version None)
Quarter: 2009Q1

REPORT INFORMATION
  Report Type: 
  Country: None (occurrence: None)
  Receive Date: 20090218
  Receipt Date: 20090212
  Transmission Date: 20090719
  Serious: Yes (Life-Threatening, Other)
  Sender: FDA-Public Use
  Company Number: DE-CELGENEUS-062-C5013-09020713

PATIENT
  Sex: Male
  Weight: 83.8 kg

DRUGS (2)
  1. CC-5013 [Suspect]
     Indication: MULTIPLE MYELOMA
     Route: 048
     Dates: start: 20081125, end: 20090112
  2. DEXAMETHASONE TAB [Suspect]
     Indication: MULTIPLE MYELOMA
     Route: 048
     Dates: start: 20081125, end: 20090113

REACTIONS (1)
  - ACUTE MYOCARDIAL INFARCTION [None]
